FAERS Safety Report 12248946 (Version 1)
Quarter: 2016Q2

REPORT INFORMATION
  Report Type: Spontaneous
  Country: CA (occurrence: None)
  Receive Date: 20160407
  Receipt Date: 20160407
  Transmission Date: 20160815
  Serious: Yes (Disabling)
  Sender: FDA-Public Use
  Company Number: None

PATIENT
  Age: 83 Year
  Sex: Female
  Weight: 56.25 kg

DRUGS (11)
  1. VITAMIN D [Concomitant]
     Active Substance: CHOLECALCIFEROL
  2. VITAMIN B12 [Concomitant]
     Active Substance: CYANOCOBALAMIN
  3. PROLIA [Suspect]
     Active Substance: DENOSUMAB
     Indication: OSTEOPOROSIS
     Dosage: EVERY 6 MONTHS GIVEN INTO/UNDER THE SKIN
     Route: 058
     Dates: start: 20140321, end: 20160311
  4. LEVOTHYROXINE. [Concomitant]
     Active Substance: LEVOTHYROXINE
  5. CRANBERRY CAPSULE [Concomitant]
     Active Substance: DIETARY SUPPLEMENT
  6. HALIBUT LIVER OIL [Concomitant]
     Active Substance: HALIBUT LIVER OIL
  7. VALID EM [Concomitant]
  8. CALCIUM [Concomitant]
     Active Substance: CALCIUM
  9. ACCURETIC [Concomitant]
     Active Substance: HYDROCHLOROTHIAZIDE\QUINAPRIL HYDROCHLORIDE
  10. GLUCOSAMINE [Concomitant]
     Active Substance: GLUCOSAMINE
  11. DILAUDID [Concomitant]
     Active Substance: HYDROMORPHONE HYDROCHLORIDE

REACTIONS (2)
  - Pain in extremity [None]
  - Activities of daily living impaired [None]
